FAERS Safety Report 4783235-8 (Version None)
Quarter: 2005Q3

REPORT INFORMATION
  Report Type: 
  Country: None (occurrence: None)
  Receive Date: 20050928
  Receipt Date: 20050928
  Transmission Date: 20060218
  Serious: Yes (Other)
  Sender: FDA-Public Use
  Company Number: None

PATIENT
  Age: 63 Year
  Sex: Female
  Weight: 49.8957 kg

DRUGS (2)
  1. FOSAMAX [Suspect]
     Dosage: DAILY
  2. FOSAMAX [Suspect]
     Dosage: WKLY
     Dates: start: 20010301, end: 20050801

REACTIONS (6)
  - ARTHRALGIA [None]
  - JAW DISORDER [None]
  - PAIN IN JAW [None]
  - PRIMARY SEQUESTRUM [None]
  - SHOULDER PAIN [None]
  - URINARY TRACT INFECTION [None]
